FAERS Safety Report 4318466-4 (Version None)
Quarter: 2004Q1

REPORT INFORMATION
  Report Type: 
  Country: None (occurrence: None)
  Receive Date: 20040317
  Receipt Date: 20040317
  Transmission Date: 20041129
  Serious: Yes (Other)
  Sender: FDA-Public Use
  Company Number: None

PATIENT
  Age: 31 Year
  Sex: Male

DRUGS (2)
  1. FERRLECIT [Suspect]
     Indication: IRON DEFICIENCY ANAEMIA
     Dosage: 500MG IV X ONE DOSE
     Route: 042
     Dates: start: 20040315
  2. FERRLECIT [Suspect]
     Indication: RENAL DISORDER
     Dosage: 500MG IV X ONE DOSE
     Route: 042
     Dates: start: 20040315

REACTIONS (10)
  - ASTHENIA [None]
  - CHEST PAIN [None]
  - DIARRHOEA [None]
  - DYSPNOEA [None]
  - FLUSHING [None]
  - HEADACHE [None]
  - HYPERHIDROSIS [None]
  - HYPERSENSITIVITY [None]
  - NAUSEA [None]
  - VISION BLURRED [None]
